FAERS Safety Report 8290771-9 (Version None)
Quarter: 2012Q2

REPORT INFORMATION
  Report Type: 
  Country: None (occurrence: None)
  Receive Date: 20120412
  Receipt Date: 20120412
  Transmission Date: 20120825
  Serious: Yes (Disabling)
  Sender: FDA-Public Use
  Company Number: None

PATIENT
  Age: 67 Year
  Sex: Female
  Weight: 73.9363 kg

DRUGS (2)
  1. LEVAQUIN [Suspect]
     Indication: PSEUDOMONAS BRONCHITIS
     Dosage: 500 MG DAILY PO
     Route: 048
     Dates: start: 20120112, end: 20120126
  2. AVELOX [Suspect]
     Indication: BRONCHITIS
     Dosage: 400 MG DAILY PO
     Route: 048
     Dates: start: 20120213, end: 20120214

REACTIONS (1)
  - FIBROMYALGIA [None]
